FAERS Safety Report 7071665-3 (Version None)
Quarter: 2010Q4

REPORT INFORMATION
  Report Type: 
  Country: None (occurrence: None)
  Receive Date: 20101029
  Receipt Date: 20091109
  Transmission Date: 20110411
  Serious: No
  Sender: FDA-Public Use
  Company Number: A0810374A

PATIENT
  Age: 62 Year
  Sex: Male
  Weight: 74.5 kg

DRUGS (4)
  1. ADVAIR DISKUS 100/50 [Suspect]
     Indication: CHRONIC OBSTRUCTIVE PULMONARY DISEASE
     Dosage: 1PUFF TWICE PER DAY
     Route: 055
  2. VENTOLIN [Concomitant]
  3. LISINOPRIL [Concomitant]
  4. ACETAMINOPHEN [Concomitant]

REACTIONS (6)
  - COUGH [None]
  - HAEMOPTYSIS [None]
  - ILL-DEFINED DISORDER [None]
  - INCREASED UPPER AIRWAY SECRETION [None]
  - OROPHARYNGEAL PAIN [None]
  - THROAT IRRITATION [None]
